FAERS Safety Report 17506912 (Version 1)
Quarter: 2020Q1

REPORT INFORMATION
  Report Type: Spontaneous
  Country: NZ (occurrence: NZ)
  Receive Date: 20200306
  Receipt Date: 20200306
  Transmission Date: 20200409
  Serious: Yes (Hospitalization, Other)
  Sender: FDA-Public Use
  Company Number: NZ-AXELLIA-003017

PATIENT
  Age: 84 Year
  Sex: Female

DRUGS (3)
  1. CEFAZOLIN [Concomitant]
     Active Substance: CEFAZOLIN
     Indication: EVIDENCE BASED TREATMENT
     Route: 033
     Dates: start: 2017
  2. COLISTIN [Suspect]
     Active Substance: COLISTIN
     Indication: PERITONITIS
     Dosage: 75 MG TWICE DAILY, RESTARTED THE FOLLOWING DAY AT 50 MG TWICE DAILY, REDUCED TO 50 MG IV DAILY
     Route: 042
     Dates: start: 2017
  3. AMIKACIN. [Concomitant]
     Active Substance: AMIKACIN
     Indication: EVIDENCE BASED TREATMENT
     Route: 033
     Dates: start: 2017

REACTIONS (5)
  - Somnolence [Recovering/Resolving]
  - Fluid overload [Unknown]
  - Face oedema [Unknown]
  - Respiratory failure [Unknown]
  - Confusional state [Recovering/Resolving]

NARRATIVE: CASE EVENT DATE: 2017
